FAERS Safety Report 8934709 (Version 1)
Quarter: 2012Q4

REPORT INFORMATION
  Report Type: 
  Country: CA (occurrence: CA)
  Receive Date: 20121129
  Receipt Date: 20121129
  Transmission Date: 20130627
  Serious: Yes (Other)
  Sender: FDA-Public Use
  Company Number: CA-B.I. PHARMACEUTICALS,INC./RIDGEFIELD-2012-CN-02369CN

PATIENT
  Age: 76 Year
  Sex: Male

DRUGS (2)
  1. PRADAX [Suspect]
     Indication: ATRIAL FIBRILLATION
     Route: 048
  2. TEGRETOL [Suspect]

REACTIONS (2)
  - Convulsion [Unknown]
  - Drug interaction [Unknown]
